FAERS Safety Report 4990282-X (Version None)
Quarter: 2006Q2

REPORT INFORMATION
  Report Type: 
  Country: None (occurrence: None)
  Receive Date: 20060503
  Receipt Date: 20060426
  Transmission Date: 20061013
  Serious: Yes (Hospitalization)
  Sender: FDA-Public Use
  Company Number: FR-GLAXOSMITHKLINE-B0421704A

PATIENT
  Age: 71 Year
  Sex: Male

DRUGS (10)
  1. ZENTEL [Suspect]
     Indication: TOXOCARIASIS
     Dosage: 1UNIT PER DAY
     Route: 048
     Dates: start: 20060303, end: 20060313
  2. INIPOMP [Concomitant]
     Route: 065
  3. LASILIX [Concomitant]
     Route: 065
  4. COVERSYL [Concomitant]
     Route: 048
  5. ICAZ [Concomitant]
     Route: 048
  6. LOPRESSOR [Concomitant]
     Route: 048
  7. MEDIATENSYL [Concomitant]
     Route: 048
  8. VASTEN [Concomitant]
     Route: 048
  9. PREVISCAN [Concomitant]
     Dosage: 20MG UNKNOWN
     Route: 048
  10. NOCTRAN [Concomitant]
     Route: 048

REACTIONS (2)
  - BONE MARROW FAILURE [None]
  - PANCYTOPENIA [None]
